FAERS Safety Report 7268283-0 (Version None)
Quarter: 2011Q1

REPORT INFORMATION
  Report Type: 
  Country: None (occurrence: None)
  Receive Date: 20110201
  Receipt Date: 20110126
  Transmission Date: 20110831
  Serious: Yes (Other)
  Sender: FDA-Public Use
  Company Number: JP-PFIZER INC-2010114289

PATIENT
  Age: 77 Year
  Sex: Male
  Weight: 66 kg

DRUGS (6)
  1. MORPHINE [Suspect]
     Indication: POST HERPETIC NEURALGIA
     Dosage: 20 MG, 4X/DAY
     Route: 048
     Dates: start: 20080729
  2. ROKUMI-GAN [Concomitant]
     Dosage: 2.5 MG, 2X/DAY
     Route: 048
     Dates: start: 20100511, end: 20100525
  3. MAG-LAX [Concomitant]
     Indication: CONSTIPATION
     Dosage: 330 MG, 3X/DAY
     Route: 048
     Dates: start: 20080805
  4. HERBAL EXTRACTS NOS [Concomitant]
     Dosage: 2.5 MG, 2X/DAY
     Route: 048
     Dates: start: 20100511, end: 20100525
  5. GLYSENNID [Concomitant]
     Indication: CONSTIPATION
     Dosage: 12 MG, 1X/DAY
     Route: 048
     Dates: start: 20081014
  6. LYRICA [Suspect]
     Indication: POST HERPETIC NEURALGIA
     Dosage: 50 MG, 2X/DAY
     Route: 048
     Dates: start: 20100706, end: 20100714

REACTIONS (3)
  - SOMNOLENCE [None]
  - PARTIAL SEIZURES [None]
  - BACK PAIN [None]
